FAERS Safety Report 4879555-9 (Version None)
Quarter: 2006Q1

REPORT INFORMATION
  Report Type: 
  Country: None (occurrence: None)
  Receive Date: 20060113
  Receipt Date: 20051202
  Transmission Date: 20060701
  Serious: Yes (Hospitalization, Other)
  Sender: FDA-Public Use
  Company Number: PHFR2005GB03930

PATIENT
  Age: 38 Year
  Sex: Male

DRUGS (2)
  1. CLOZARIL [Suspect]
     Indication: SCHIZOPHRENIA
     Dosage: 300 MG/DAY
     Route: 048
     Dates: start: 20020621
  2. CLOZARIL [Suspect]
     Dosage: 175 MG/DAY
     Route: 048

REACTIONS (20)
  - AMNESIA [None]
  - BARRETT'S OESOPHAGUS [None]
  - BIOPSY OESOPHAGUS [None]
  - BLOOD CHOLESTEROL INCREASED [None]
  - BLOOD FOLATE ABNORMAL [None]
  - CONFUSIONAL STATE [None]
  - COOMBS POSITIVE HAEMOLYTIC ANAEMIA [None]
  - EOSINOPHIL COUNT DECREASED [None]
  - GASTROOESOPHAGEAL REFLUX DISEASE [None]
  - HAEMATOCRIT DECREASED [None]
  - HAEMOGLOBIN DECREASED [None]
  - LYMPHOCYTE COUNT INCREASED [None]
  - NASOPHARYNGITIS [None]
  - NEUTROPHIL COUNT INCREASED [None]
  - PLATELET COUNT INCREASED [None]
  - RED BLOOD CELL COUNT DECREASED [None]
  - RED BLOOD CELL SEDIMENTATION RATE INCREASED [None]
  - RETICULOCYTE COUNT INCREASED [None]
  - SYNCOPE [None]
  - WHITE BLOOD CELL COUNT INCREASED [None]
